FAERS Safety Report 25069702 (Version 2)
Quarter: 2025Q2

REPORT INFORMATION
  Report Type: Spontaneous
  Country: DE (occurrence: DE)
  Receive Date: 20250312
  Receipt Date: 20250401
  Transmission Date: 20250717
  Serious: Yes (Death, Other)
  Sender: EXELIXIS
  Company Number: DE-IPSEN Group, Research and Development-2025-05409

PATIENT
  Age: 82 Year
  Sex: Female

DRUGS (2)
  1. CABOMETYX [Suspect]
     Active Substance: CABOZANTINIB S-MALATE
     Indication: Metastatic renal cell carcinoma
     Route: 065
     Dates: start: 20220401
  2. CABOMETYX [Suspect]
     Active Substance: CABOZANTINIB S-MALATE
     Route: 065

REACTIONS (8)
  - Death [Fatal]
  - Condition aggravated [Unknown]
  - Diarrhoea [Unknown]
  - Vomiting [Unknown]
  - Hypotension [Unknown]
  - Asthenia [Unknown]
  - Fatigue [Unknown]
  - Anaemia [Unknown]

NARRATIVE: CASE EVENT DATE: 20220419
